FAERS Safety Report 8993171 (Version 1)
Quarter: 2013Q1

REPORT INFORMATION
  Report Type: Spontaneous
  Country: US (occurrence: US)
  Receive Date: 20130102
  Receipt Date: 20130102
  Transmission Date: 20140127
  Serious: Yes (Hospitalization)
  Sender: FDA-Public Use
  Company Number: US-INCYTE CORPORATION-2012IN002707

PATIENT
  Age: 86 Year
  Sex: Male

DRUGS (1)
  1. JAKAFI [Suspect]
     Dosage: 5 MG, BID
     Route: 048
     Dates: start: 20121025, end: 2012

REACTIONS (2)
  - Hospitalisation [Unknown]
  - Drug ineffective [Unknown]
